FAERS Safety Report 10591822 (Version 1)
Quarter: 2014Q4

REPORT INFORMATION
  Report Type: Spontaneous
  Country: IT (occurrence: IT)
  Receive Date: 20141118
  Receipt Date: 20141118
  Transmission Date: 20150529
  Serious: Yes (Other)
  Sender: FDA-Public Use
  Company Number: PHHY2014IT146690

PATIENT
  Age: 53 Year
  Sex: Female

DRUGS (2)
  1. CETIRIZINE [Suspect]
     Active Substance: CETIRIZINE HYDROCHLORIDE
     Indication: PRURITUS
     Dosage: 10 MG, QD
     Route: 065
  2. CETIRIZINE [Suspect]
     Active Substance: CETIRIZINE HYDROCHLORIDE
     Indication: URTICARIA

REACTIONS (6)
  - Feeding disorder [Recovering/Resolving]
  - Oromandibular dystonia [Recovering/Resolving]
  - Speech disorder [Recovering/Resolving]
  - Protrusion tongue [Recovering/Resolving]
  - Weight decreased [Recovering/Resolving]
  - Dysphagia [Recovering/Resolving]
